FAERS Safety Report 8119536-5 (Version None)
Quarter: 2012Q1

REPORT INFORMATION
  Report Type: 
  Country: None (occurrence: None)
  Receive Date: 20120207
  Receipt Date: 20120130
  Transmission Date: 20120608
  Serious: Yes (Other)
  Sender: FDA-Public Use
  Company Number: PHHY2012JP008117

PATIENT
  Age: 65 Year
  Sex: Male

DRUGS (7)
  1. PLAVIX [Concomitant]
     Dosage: UNK
     Route: 048
  2. DIGOXIN [Concomitant]
     Route: 048
  3. AMARYL [Concomitant]
     Route: 048
  4. RADEN [Concomitant]
     Route: 048
  5. SITAGLIPTIN PHOSPHATE [Concomitant]
     Route: 048
  6. LIPITOR [Concomitant]
     Route: 048
  7. ONBREZ [Suspect]
     Indication: CHRONIC OBSTRUCTIVE PULMONARY DISEASE
     Dosage: UNK
     Dates: start: 20120120

REACTIONS (2)
  - PRODUCTIVE COUGH [None]
  - LUNG NEOPLASM MALIGNANT [None]
